FAERS Safety Report 6158153-3 (Version None)
Quarter: 2009Q2

REPORT INFORMATION
  Report Type: 
  Country: None (occurrence: None)
  Receive Date: 20090414
  Receipt Date: 20090414
  Transmission Date: 20091009
  Serious: Yes (Other)
  Sender: FDA-Public Use
  Company Number: None

PATIENT
  Age: 25 Year
  Sex: Female
  Weight: 61.6892 kg

DRUGS (1)
  1. MEDROXYPROGESTERONE [Suspect]
     Indication: INJECTABLE CONTRACEPTION
     Dosage: MEDROXPROGESTEREONE  EVERY 12 WEEKS IM
     Route: 030
     Dates: start: 20081007, end: 20081202

REACTIONS (2)
  - DRUG EXPOSURE DURING PREGNANCY [None]
  - PREGNANCY WITH INJECTABLE CONTRACEPTIVE [None]
